FAERS Safety Report 4626454-3 (Version None)
Quarter: 2005Q1

REPORT INFORMATION
  Report Type: 
  Country: None (occurrence: None)
  Receive Date: 20050330
  Receipt Date: 20050315
  Transmission Date: 20050727
  Serious: Yes (Hospitalization, Other)
  Sender: FDA-Public Use
  Company Number: USA050289631

PATIENT
  Age: 76 Year
  Sex: Female

DRUGS (15)
  1. FORTEO [Suspect]
     Indication: BLOOD CALCIUM DECREASED
     Dosage: 20 UG
     Dates: start: 20041001
  2. PLAVIX [Concomitant]
  3. ASPIRIN [Concomitant]
  4. CRESTOR [Concomitant]
  5. VYTORIN [Concomitant]
  6. ISORDIL [Concomitant]
  7. MONOPRIL-HCT [Concomitant]
  8. LEVOXYL [Concomitant]
  9. FOLATE SODIUM [Concomitant]
  10. VITAMIN B COMPLEX CAP [Concomitant]
  11. NORVASC [Concomitant]
  12. ACTONEL [Concomitant]
  13. GABITRIL [Concomitant]
  14. LEXAPRO [Concomitant]
  15. CLONAZEPAM [Concomitant]

REACTIONS (3)
  - ARTERIAL OCCLUSIVE DISEASE [None]
  - CHEST PAIN [None]
  - PHARMACEUTICAL PRODUCT COMPLAINT [None]
